FAERS Safety Report 5406586-2 (Version None)
Quarter: 2007Q3

REPORT INFORMATION
  Report Type: 
  Country: None (occurrence: None)
  Receive Date: 20070806
  Receipt Date: 20070727
  Transmission Date: 20080115
  Serious: Yes (Hospitalization)
  Sender: FDA-Public Use
  Company Number: US-PFIZER INC-2007061762

PATIENT
  Age: 27 Year
  Sex: Female
  Weight: 71 kg

DRUGS (1)
  1. SUTENT [Suspect]
     Indication: CERVIX CARCINOMA
     Route: 048

REACTIONS (3)
  - HAEMOGLOBIN [None]
  - VAGINAL FISTULA [None]
  - VAGINAL HAEMORRHAGE [None]
